FAERS Safety Report 6265667-4 (Version None)
Quarter: 2009Q3

REPORT INFORMATION
  Report Type: 
  Country: None (occurrence: None)
  Receive Date: 20090709
  Receipt Date: 20090709
  Transmission Date: 20100115
  Serious: Yes (Life-Threatening)
  Sender: FDA-Public Use
  Company Number: None

PATIENT
  Age: 27 Year
  Sex: Female
  Weight: 57.4707 kg

DRUGS (2)
  1. DIVALPROEX SODIUM [Suspect]
     Indication: DRUG USE FOR UNKNOWN INDICATION
     Dosage: 1000MG QD PO
     Route: 048
     Dates: start: 20090619, end: 20090702
  2. IMITREX [Suspect]
     Indication: MIGRAINE
     Dosage: 50MG QD PRN PO
     Route: 048
     Dates: start: 20090618, end: 20090706

REACTIONS (1)
  - THROMBOCYTOPENIA [None]
